FAERS Safety Report 4743390-2 (Version None)
Quarter: 2005Q3

REPORT INFORMATION
  Report Type: 
  Country: None (occurrence: None)
  Receive Date: 20050809
  Receipt Date: 20050728
  Transmission Date: 20060218
  Serious: Yes (Hospitalization)
  Sender: FDA-Public Use
  Company Number: 2005BI014335

PATIENT
  Age: 60 Year
  Sex: Female

DRUGS (1)
  1. AVONEX [Suspect]
     Indication: MULTIPLE SCLEROSIS
     Dosage: 30 UG QW IM
     Route: 030
     Dates: start: 20021025

REACTIONS (6)
  - ASTHENIA [None]
  - BACK INJURY [None]
  - FALL [None]
  - HYPOAESTHESIA [None]
  - PARALYSIS [None]
  - VISUAL ACUITY REDUCED [None]
